FAERS Safety Report 4362664-0 (Version None)
Quarter: 2004Q2

REPORT INFORMATION
  Report Type: 
  Country: None (occurrence: None)
  Receive Date: 20040524
  Receipt Date: 20040514
  Transmission Date: 20050107
  Serious: Yes (Hospitalization)
  Sender: FDA-Public Use
  Company Number: 200411970FR

PATIENT
  Age: 59 Year
  Sex: Female

DRUGS (10)
  1. LASILIX 40 MG [Suspect]
     Route: 048
  2. CELECTOL [Suspect]
     Route: 048
  3. TEGRETOL [Suspect]
     Route: 048
  4. AMLODIPINE [Suspect]
     Route: 048
  5. HYPERIUM [Suspect]
     Route: 048
  6. APROVEL [Suspect]
     Route: 048
  7. OROCAL [Concomitant]
     Route: 048
  8. LAROXYL [Concomitant]
     Route: 048
  9. KAYEXALATE [Concomitant]
  10. ARANESP [Concomitant]

REACTIONS (7)
  - ANXIETY [None]
  - BLOOD CREATININE INCREASED [None]
  - BLOOD UREA INCREASED [None]
  - HYPERKALAEMIA [None]
  - HYPERTENSION [None]
  - LOSS OF CONSCIOUSNESS [None]
  - MALAISE [None]
